FAERS Safety Report 23229519 (Version 1)
Quarter: 2023Q4

REPORT INFORMATION
  Report Type: Spontaneous
  Country: US (occurrence: US)
  Receive Date: 20231127
  Receipt Date: 20231127
  Transmission Date: 20240110
  Serious: Yes (Other)
  Sender: FDA-Public Use
  Company Number: US-JNJFOC-20231152589

PATIENT

DRUGS (1)
  1. AVEENO SOOTHING BATH TREATMENT [Suspect]
     Active Substance: OATMEAL
     Indication: Eczema
     Route: 061

REACTIONS (3)
  - Angioedema [Recovered/Resolved]
  - Application site hypersensitivity [Recovered/Resolved]
  - Drug ineffective [Unknown]
